FAERS Safety Report 8136354-2 (Version None)
Quarter: 2012Q1

REPORT INFORMATION
  Report Type: 
  Country: None (occurrence: None)
  Receive Date: 20120214
  Receipt Date: 20120201
  Transmission Date: 20120608
  Serious: Yes (Other)
  Sender: FDA-Public Use
  Company Number: US-JNJFOC-20120201767

PATIENT
  Sex: Female

DRUGS (1)
  1. INFLIXIMAB, RECOMBINANT [Suspect]
     Indication: EXPOSURE VIA SEMEN
     Route: 050
     Dates: start: 20021001

REACTIONS (3)
  - ABORTION SPONTANEOUS [None]
  - PROGESTERONE DECREASED [None]
  - MATERNAL EXPOSURE DURING PREGNANCY [None]
